FAERS Safety Report 18017209 (Version 1)
Quarter: 2020Q3

REPORT INFORMATION
  Report Type: Spontaneous
  Country: IR (occurrence: IR)
  Receive Date: 20200714
  Receipt Date: 20200714
  Transmission Date: 20201103
  Serious: Yes (Other)
  Sender: FDA-Public Use
  Company Number: IR-LUPIN PHARMACEUTICALS INC.-2020-03233

PATIENT
  Age: 50 Year
  Sex: Female

DRUGS (4)
  1. HYDROXYCHLOROQUINE SULFATE. [Suspect]
     Active Substance: HYDROXYCHLOROQUINE SULFATE
     Indication: COVID-19
     Dosage: UNK
     Route: 065
  2. VANCOMYCIN HYDROCHLORIDE. [Suspect]
     Active Substance: VANCOMYCIN HYDROCHLORIDE
     Indication: COVID-19
     Dosage: UNK
     Route: 065
  3. IMIPENEM [Suspect]
     Active Substance: IMIPENEM
     Indication: COVID-19
     Dosage: UNK
     Route: 065
  4. KALETRA [Suspect]
     Active Substance: LOPINAVIR\RITONAVIR
     Indication: COVID-19
     Dosage: UNK
     Route: 065

REACTIONS (1)
  - Off label use [Unknown]
